FAERS Safety Report 4317660-6 (Version None)
Quarter: 2004Q1

REPORT INFORMATION
  Report Type: 
  Country: None (occurrence: None)
  Receive Date: 20040315
  Receipt Date: 20040309
  Transmission Date: 20041129
  Serious: Yes (Hospitalization)
  Sender: FDA-Public Use
  Company Number: WAES 0403CAN00057

PATIENT
  Age: 40 Year
  Sex: Male

DRUGS (1)
  1. FOSAMAX [Suspect]
     Route: 048

REACTIONS (3)
  - APLASTIC ANAEMIA [None]
  - HYPOTHERMIA [None]
  - PSYCHOTIC DISORDER [None]
